FAERS Safety Report 11039520 (Version 2)
Quarter: 2015Q2

REPORT INFORMATION
  Report Type: Spontaneous
  Country: US (occurrence: US)
  Receive Date: 20150416
  Receipt Date: 20150525
  Transmission Date: 20150821
  Serious: No
  Sender: FDA-Public Use
  Company Number: US-JNJFOC-20130305766

PATIENT
  Age: 53 Year
  Sex: Male
  Weight: 129.73 kg

DRUGS (1)
  1. XARELTO [Suspect]
     Active Substance: RIVAROXABAN
     Indication: ATRIAL FIBRILLATION
     Route: 048
     Dates: start: 20130225, end: 20130227

REACTIONS (2)
  - Pruritus [Recovered/Resolved]
  - Irritability [Unknown]

NARRATIVE: CASE EVENT DATE: 20130226
